FAERS Safety Report 7272899-5 (Version None)
Quarter: 2011Q1

REPORT INFORMATION
  Report Type: 
  Country: None (occurrence: None)
  Receive Date: 20110203
  Receipt Date: 20110124
  Transmission Date: 20110831
  Serious: Yes (Other)
  Sender: FDA-Public Use
  Company Number: US-MYLANLABS-2010S1017399

PATIENT
  Age: 56 Year
  Sex: Female
  Weight: 94.8 kg

DRUGS (24)
  1. ALPRAZOLAM [Concomitant]
  2. CYMBALTA [Concomitant]
  3. OMEPRAZOLE [Concomitant]
  4. VIVELLE-DOT [Concomitant]
     Dosage: CHANGE QW
  5. TAURINE [Concomitant]
  6. TRAZODONE HCL [Concomitant]
  7. SIMVASTATIN [Concomitant]
  8. FENTANYL TRANSDERMAL SYSTEM [Suspect]
     Route: 062
  9. BYETTA [Concomitant]
     Indication: DIABETES MELLITUS
  10. FISH OIL [Concomitant]
  11. METFORMIN [Concomitant]
  12. LISINOPRIL [Concomitant]
     Indication: HYPERTENSION
     Dates: end: 20100917
  13. AMITRIPTYLINE HCL [Concomitant]
  14. FENTANYL TRANSDERMAL SYSTEM [Suspect]
     Indication: FIBROMYALGIA
     Dosage: CHANGED Q72HOURS
     Route: 062
     Dates: start: 20100801, end: 20100101
  15. LANTUS [Concomitant]
     Indication: DIABETES MELLITUS
  16. TIZANIDINE [Concomitant]
  17. NICOTINAMIDE [Concomitant]
  18. VAGIFEM [Concomitant]
  19. GORMEL AVENA [Concomitant]
     Dosage: 20% UREA FOR FEET
  20. FLAXSEED OIL [Concomitant]
  21. LEVOTHYROXINE [Concomitant]
     Indication: HYPOTHYROIDISM
  22. ONDANSETRON [Concomitant]
  23. ZOMIG [Concomitant]
  24. METROGEL [Concomitant]

REACTIONS (3)
  - HYPOTENSION [None]
  - DEHYDRATION [None]
  - DRUG INEFFECTIVE [None]
